FAERS Safety Report 13697723 (Version 2)
Quarter: 2017Q3

REPORT INFORMATION
  Report Type: Report from Study
  Country: US (occurrence: US)
  Receive Date: 20170628
  Receipt Date: 20170801
  Transmission Date: 20171127
  Serious: Yes (Hospitalization, Other)
  Sender: FDA-Public Use
  Company Number: US-SA-2017SA105390

PATIENT
  Age: 43 Year
  Sex: Male

DRUGS (2)
  1. LEMTRADA [Suspect]
     Active Substance: ALEMTUZUMAB
     Indication: MULTIPLE SCLEROSIS
     Route: 041
     Dates: start: 20170425, end: 20170427
  2. CIPRO [Suspect]
     Active Substance: CIPROFLOXACIN HYDROCHLORIDE
     Indication: URINARY TRACT INFECTION
     Route: 065

REACTIONS (10)
  - Hallucination [Unknown]
  - Upper respiratory tract infection [Recovered/Resolved]
  - Blood potassium decreased [Not Recovered/Not Resolved]
  - Unresponsive to stimuli [Unknown]
  - Bedridden [Unknown]
  - Fungal infection [Not Recovered/Not Resolved]
  - Urosepsis [Recovered/Resolved]
  - Multiple sclerosis relapse [Unknown]
  - Mydriasis [Unknown]
  - Diarrhoea [Not Recovered/Not Resolved]

NARRATIVE: CASE EVENT DATE: 2017
